FAERS Safety Report 15266818 (Version 2)
Quarter: 2018Q4

REPORT INFORMATION
  Report Type: Report from Study
  Country: US (occurrence: US)
  Receive Date: 20180810
  Receipt Date: 20181105
  Transmission Date: 20190204
  Serious: Yes (Other)
  Sender: FDA-Public Use
  Company Number: PHEH2018US032460

PATIENT
  Sex: Female

DRUGS (1)
  1. ENTRESTO [Suspect]
     Active Substance: SACUBITRIL\VALSARTAN
     Indication: CARDIAC FAILURE
     Dosage: UNK
     Route: 048

REACTIONS (8)
  - Hypoacusis [Unknown]
  - Bladder disorder [Unknown]
  - Sciatica [Unknown]
  - Dizziness [Unknown]
  - Loss of consciousness [Unknown]
  - Fluid retention [Unknown]
  - Dyspnoea [Unknown]
  - Fatigue [Unknown]
